FAERS Safety Report 13354431 (Version 2)
Quarter: 2017Q2

REPORT INFORMATION
  Report Type: Spontaneous
  Country: US (occurrence: US)
  Receive Date: 20170321
  Receipt Date: 20170428
  Transmission Date: 20170830
  Serious: Yes (Hospitalization, Other)
  Sender: FDA-Public Use
  Company Number: US-AUROBINDO-AUR-APL-2017-30892

PATIENT
  Age: 5 Decade
  Sex: Male

DRUGS (2)
  1. IBUPROFEN. [Suspect]
     Active Substance: IBUPROFEN
     Indication: COUGH
     Dosage: UNK
     Route: 065
  2. AMIBIDE-DM [Concomitant]
     Indication: COUGH
     Dosage: UNK
     Route: 065

REACTIONS (2)
  - Skin hyperpigmentation [Not Recovered/Not Resolved]
  - Fixed eruption [Recovered/Resolved with Sequelae]
